FAERS Safety Report 7682050-5 (Version None)
Quarter: 2011Q3

REPORT INFORMATION
  Report Type: 
  Country: None (occurrence: None)
  Receive Date: 20110809
  Receipt Date: 20110801
  Transmission Date: 20111222
  Serious: Yes (Other)
  Sender: FDA-Public Use
  Company Number: 2011SP036181

PATIENT
  Age: 37 Year
  Sex: Female
  Weight: 60 kg

DRUGS (2)
  1. CERAZETTE (DESOGESTREL /00754001/) [Suspect]
     Indication: CONTRACEPTION
     Dosage: PO
     Route: 048
     Dates: start: 20110501
  2. DOXEPIN [Suspect]
     Indication: POSTPARTUM DEPRESSION
     Dosage: 10 MG; QD; PO
     Route: 048
     Dates: start: 20110718

REACTIONS (5)
  - POSTPARTUM DEPRESSION [None]
  - BREAST SWELLING [None]
  - ASTHENIA [None]
  - JOINT SWELLING [None]
  - BREAST PAIN [None]
